FAERS Safety Report 4828061-6 (Version None)
Quarter: 2005Q4

REPORT INFORMATION
  Report Type: 
  Country: None (occurrence: None)
  Receive Date: 20051110
  Receipt Date: 20051028
  Transmission Date: 20060501
  Serious: Yes (Other)
  Sender: FDA-Public Use
  Company Number: JP_051108045

PATIENT
  Age: 84 Year
  Sex: Female

DRUGS (2)
  1. EVISTA [Suspect]
     Indication: OSTEOPOROSIS
     Dosage: 60 MG/1 DAY
     Route: 048
  2. LOCHOL (FLUVASTATIN SODIUM) [Concomitant]

REACTIONS (1)
  - HEPATITIS ACUTE [None]
